FAERS Safety Report 7956233-0 (Version None)
Quarter: 2011Q4

REPORT INFORMATION
  Report Type: 
  Country: None (occurrence: None)
  Receive Date: 20111205
  Receipt Date: 20111124
  Transmission Date: 20120403
  Serious: Yes (Other)
  Sender: FDA-Public Use
  Company Number: JP-BRISTOL-MYERS SQUIBB COMPANY-16262537

PATIENT
  Age: 1 Day
  Sex: Male
  Weight: 2 kg

DRUGS (5)
  1. MEILAX [Concomitant]
     Dosage: TABS
     Dates: start: 20110425, end: 20110610
  2. ABILIFY [Suspect]
     Dosage: 12MG 18APR-24APR11 7D 18MG 25APR-10JUN11 47D 24MG 11JUN-21JUL11 41D 18MG 22JUL-17SEP11 58D
     Route: 064
     Dates: start: 20110418, end: 20110917
  3. CLONAZEPAM [Concomitant]
     Dosage: TABS
     Dates: start: 20110418, end: 20110917
  4. ALPRAZOLAM [Concomitant]
     Dosage: TABS CALMDOWN
     Dates: start: 20110425, end: 20110917
  5. ZOLPIDEM [Concomitant]
     Dosage: TABS
     Dates: start: 20110808, end: 20110917

REACTIONS (3)
  - LOW BIRTH WEIGHT BABY [None]
  - PREMATURE BABY [None]
  - MATERNAL DRUGS AFFECTING FOETUS [None]
